FAERS Safety Report 15126459 (Version 1)
Quarter: 2018Q3

REPORT INFORMATION
  Report Type: Spontaneous
  Country: US (occurrence: US)
  Receive Date: 20180614
  Receipt Date: 20180614
  Transmission Date: 20181010
  Serious: No
  Sender: FDA-Public Use
  Company Number: None

PATIENT
  Age: 33 Year
  Sex: Male
  Weight: 83.25 kg

DRUGS (1)
  1. CIPROFLOXACIN. [Suspect]
     Active Substance: CIPROFLOXACIN
     Indication: EPIDIDYMITIS
     Dosage: ?          QUANTITY:1 DF DOSAGE FORM;?
     Route: 048
     Dates: start: 20170131, end: 20170209

REACTIONS (20)
  - Hepatic pain [None]
  - Paranasal sinus hyposecretion [None]
  - Mitochondrial toxicity [None]
  - Dental caries [None]
  - Paraesthesia [None]
  - Feeling abnormal [None]
  - Dry mouth [None]
  - Back pain [None]
  - Muscle twitching [None]
  - Vitreous floaters [None]
  - Hepatomegaly [None]
  - Ear disorder [None]
  - Biliary colic [None]
  - Hypoaesthesia [None]
  - Pain in extremity [None]
  - Myalgia [None]
  - Anxiety [None]
  - Tendon pain [None]
  - Disturbance in attention [None]
  - Arthralgia [None]

NARRATIVE: CASE EVENT DATE: 20170205
